FAERS Safety Report 6732730-0 (Version None)
Quarter: 2010Q2

REPORT INFORMATION
  Report Type: 
  Country: None (occurrence: None)
  Receive Date: 20100519
  Receipt Date: 20100517
  Transmission Date: 20101027
  Serious: Yes (Death, Hospitalization)
  Sender: FDA-Public Use
  Company Number: GB-WYE-G05929110

PATIENT
  Sex: Male

DRUGS (8)
  1. GEMTUZUMAB OZOGAMICIN [Suspect]
     Indication: ACUTE MYELOID LEUKAEMIA
     Dosage: 5.5 MG EVERY 1 TOT
     Route: 042
     Dates: start: 20090922
  2. LANSOPRAZOLE [Concomitant]
     Dates: end: 20100330
  3. SENNA [Concomitant]
     Dates: end: 20100328
  4. METOCLOPRAMIDE [Concomitant]
     Dates: end: 20100327
  5. BUSCOPAN [Concomitant]
     Dates: end: 20100327
  6. COTRIM [Concomitant]
     Dosage: 80/400 MG BD, MONDAY, WEDNESDAY, FRIDAY
     Dates: end: 20100329
  7. PARACETAMOL [Concomitant]
     Dates: end: 20100331
  8. ZOPICLONE [Concomitant]
     Dates: end: 20100327

REACTIONS (8)
  - ACUTE MYELOID LEUKAEMIA [None]
  - DISEASE PROGRESSION [None]
  - HERPES ZOSTER DISSEMINATED [None]
  - ILEUS PARALYTIC [None]
  - MULTI-ORGAN FAILURE [None]
  - PANCREATITIS [None]
  - RASH [None]
  - SEPSIS [None]
